FAERS Safety Report 22623812 (Version 1)
Quarter: 2023Q2

REPORT INFORMATION
  Report Type: Spontaneous
  Country: US (occurrence: US)
  Receive Date: 20230621
  Receipt Date: 20230621
  Transmission Date: 20230722
  Serious: No
  Sender: FDA-Public Use
  Company Number: US-BAYER-2023A087006

PATIENT
  Sex: Male

DRUGS (2)
  1. MIRALAX [Suspect]
     Active Substance: POLYETHYLENE GLYCOL 3350
     Indication: Colonoscopy
     Dosage: 4 CAPFULS DOSE
     Route: 048
  2. DOLASAFE [DICLOFENAC SODIUM] [Concomitant]

REACTIONS (2)
  - Extra dose administered [Unknown]
  - Off label use [Unknown]
